FAERS Safety Report 8466156-9 (Version None)
Quarter: 2012Q2

REPORT INFORMATION
  Report Type: 
  Country: None (occurrence: None)
  Receive Date: 20120626
  Receipt Date: 20120601
  Transmission Date: 20120825
  Serious: Yes (Death, Life-Threatening, Hospitalization, Other)
  Sender: FDA-Public Use
  Company Number: JP-PFIZER INC-2012046210

PATIENT
  Sex: Male

DRUGS (15)
  1. PROMAC /JPN/ [Suspect]
     Dosage: UNK
     Dates: start: 20120118, end: 20120121
  2. RADICUT [Concomitant]
     Dosage: UNK
     Dates: start: 20111214, end: 20111226
  3. DORIPENEM MONOHYDRATE [Concomitant]
     Dosage: UNK
     Dates: start: 20120103, end: 20120116
  4. FULCALIQ [Concomitant]
     Dosage: UNK
     Dates: start: 20120120, end: 20120127
  5. CEFAZOLIN [Suspect]
     Indication: PYREXIA
     Dosage: 1 G, 2X/DAY
     Route: 041
     Dates: start: 20111225, end: 20111229
  6. PLAVIX [Suspect]
     Dosage: UNK
     Dates: start: 20111214, end: 20120118
  7. METHYLPREDNISOLONE SODIUM SUCCINATE [Concomitant]
     Dosage: UNK
     Dates: start: 20120122, end: 20120127
  8. AMINO ACIDS/CARBOHYDRATES/MINERALS/VITAMINS, [Concomitant]
     Dosage: UNK
     Dates: start: 20120120, end: 20120127
  9. FUROSEMIDE [Concomitant]
     Dosage: UNK
     Dates: start: 20110101, end: 20111213
  10. LIPITOR [Suspect]
     Indication: LOW DENSITY LIPOPROTEIN INCREASED
     Dosage: 10 MG, 1X/DAY
     Route: 048
     Dates: start: 20120113, end: 20120121
  11. VALPROATE SODIUM [Suspect]
     Indication: CONVULSION
     Dosage: 8 ML, 2X/DAY
     Route: 048
     Dates: start: 20111214, end: 20120121
  12. OZAGREL SODIUM [Concomitant]
     Dosage: UNK
     Dates: start: 20111215, end: 20111227
  13. SPIRONOLACTONE [Concomitant]
     Dosage: UNK
     Dates: start: 20110101, end: 20111213
  14. CITICOLINE [Concomitant]
     Dosage: UNK
     Dates: start: 20111215, end: 20111228
  15. ALLORINE [Concomitant]
     Dosage: UNK
     Dates: start: 20110125, end: 20111213

REACTIONS (4)
  - ASPARTATE AMINOTRANSFERASE INCREASED [None]
  - ALANINE AMINOTRANSFERASE INCREASED [None]
  - ERYTHEMA MULTIFORME [None]
  - STEVENS-JOHNSON SYNDROME [None]
